FAERS Safety Report 4576809-0 (Version None)
Quarter: 2005Q1

REPORT INFORMATION
  Report Type: 
  Country: None (occurrence: None)
  Receive Date: 20050210
  Receipt Date: 20050131
  Transmission Date: 20050727
  Serious: Yes (Hospitalization)
  Sender: FDA-Public Use
  Company Number: IT-BRISTOL-MYERS SQUIBB COMPANY-12843827

PATIENT
  Age: 72 Year
  Sex: Female
  Weight: 97 kg

DRUGS (7)
  1. CARBOPLATIN [Suspect]
     Indication: MESOTHELIOMA
     Route: 042
     Dates: start: 20040727, end: 20040727
  2. ALIMTA [Suspect]
     Indication: MESOTHELIOMA
     Route: 042
     Dates: start: 20040727, end: 20040727
  3. INSULIN [Concomitant]
     Indication: DIABETES MELLITUS
     Dates: start: 20040806
  4. EPOGEN [Concomitant]
     Indication: ANAEMIA
     Dates: start: 20040806
  5. FOLIC ACID [Concomitant]
     Dates: start: 20040806
  6. DEXAMETHASONE [Concomitant]
     Dates: start: 20040806
  7. VITAMIN B-12 [Concomitant]
     Dates: start: 20040720

REACTIONS (6)
  - ASTHENIA [None]
  - CONSTIPATION [None]
  - DIVERTICULUM INTESTINAL [None]
  - NAUSEA [None]
  - PANCYTOPENIA [None]
  - VOMITING [None]
